FAERS Safety Report 8398682-5 (Version None)
Quarter: 2012Q2

REPORT INFORMATION
  Report Type: 
  Country: None (occurrence: None)
  Receive Date: 20120531
  Receipt Date: 20120518
  Transmission Date: 20120825
  Serious: Yes (Other)
  Sender: FDA-Public Use
  Company Number: JP-BAYER-2012-045940

PATIENT
  Age: 79 Year
  Sex: Male

DRUGS (7)
  1. CARVEDILOL [Concomitant]
     Dosage: DAILY DOSE 2.5 MG
     Route: 048
  2. VALSARTAN [Concomitant]
     Dosage: DAILY DOSE 80 MG
     Route: 048
  3. ASPIRIN [Suspect]
     Dosage: DAILY DOSE 100 MG
     Route: 048
  4. SPIRONOLACTONE [Concomitant]
     Dosage: DAILY DOSE 25 MG
     Route: 048
  5. WARFARIN SODIUM [Suspect]
     Indication: THROMBOSIS PROPHYLAXIS
     Dosage: DAILY DOSE 1 MG
     Route: 048
  6. ISOSORBIDE DINITRATE [Concomitant]
     Dosage: DAILY DOSE 40 MG
  7. FUROSEMIDE [Concomitant]
     Dosage: DAILY DOSE 20 MG

REACTIONS (1)
  - MUSCLE HAEMORRHAGE [None]
